FAERS Safety Report 8286595-9 (Version None)
Quarter: 2012Q2

REPORT INFORMATION
  Report Type: 
  Country: None (occurrence: None)
  Receive Date: 20120416
  Receipt Date: 20120405
  Transmission Date: 20120825
  Serious: Yes (Other)
  Sender: FDA-Public Use
  Company Number: US-JNJFOC-20120403051

PATIENT
  Sex: Male
  Weight: 79.38 kg

DRUGS (4)
  1. CLONAZEPAM [Concomitant]
     Route: 048
     Dates: start: 20060101
  2. STELARA [Suspect]
     Indication: PSORIATIC ARTHROPATHY
     Route: 058
     Dates: start: 20100101, end: 20110101
  3. STELARA [Suspect]
     Indication: PUSTULAR PSORIASIS
     Route: 058
     Dates: start: 20100101, end: 20110101
  4. ADDERALL 5 [Concomitant]
     Indication: ATTENTION DEFICIT/HYPERACTIVITY DISORDER
     Route: 048
     Dates: start: 20060101

REACTIONS (3)
  - ECZEMA [None]
  - DRUG INEFFECTIVE [None]
  - RASH PUSTULAR [None]
